FAERS Safety Report 17803463 (Version 1)
Quarter: 2020Q2

REPORT INFORMATION
  Report Type: Spontaneous
  Country: CA (occurrence: CA)
  Receive Date: 20200519
  Receipt Date: 20200519
  Transmission Date: 20200714
  Serious: Yes (Other)
  Sender: FDA-Public Use
  Company Number: CA-PFIZER INC-2020194026

PATIENT
  Age: 21 Year
  Sex: Female

DRUGS (4)
  1. HYDROMORPHONE HYDROCHLORIDE. [Suspect]
     Active Substance: HYDROMORPHONE HYDROCHLORIDE
     Dosage: UNK
     Route: 065
  2. METHAMPHETAMINE [METAMFETAMINE] [Suspect]
     Active Substance: METHAMPHETAMINE
     Dosage: UNK
     Route: 065
  3. COCAINE [Suspect]
     Active Substance: COCAINE
     Dosage: UNK
     Route: 065
  4. DILAUDID [Suspect]
     Active Substance: HYDROMORPHONE HYDROCHLORIDE
     Dosage: UNK
     Route: 065

REACTIONS (18)
  - Coma [Unknown]
  - Substance abuse [Unknown]
  - Hepatic failure [Unknown]
  - Myocardial infarction [Unknown]
  - Renal failure [Unknown]
  - Overdose [Unknown]
  - Emotional poverty [Unknown]
  - Fine motor skill dysfunction [Unknown]
  - Loss of consciousness [Unknown]
  - Near death experience [Unknown]
  - Substance dependence [Unknown]
  - Cerebrovascular accident [Unknown]
  - Amnesia [Unknown]
  - Drug tolerance increased [Unknown]
  - Balance disorder [Unknown]
  - Euphoric mood [Unknown]
  - Nasal congestion [Unknown]
  - Pulmonary oedema [Unknown]
